FAERS Safety Report 16064079 (Version 1)
Quarter: 2019Q1

REPORT INFORMATION
  Report Type: Report from Study
  Country: MX (occurrence: MX)
  Receive Date: 20190312
  Receipt Date: 20190312
  Transmission Date: 20190418
  Serious: Yes (Disabling, Other)
  Sender: FDA-Public Use
  Company Number: PHHY2019MX042961

PATIENT
  Sex: Female

DRUGS (1)
  1. EXFORGE [Suspect]
     Active Substance: AMLODIPINE BESYLATE\VALSARTAN
     Indication: HYPERTENSION
     Dosage: (AMLODIPINE 5MG, VALSARTAN 160MG)
     Route: 048
     Dates: start: 2012, end: 20190220

REACTIONS (5)
  - Diabetes mellitus [Unknown]
  - Spinal disorder [Unknown]
  - Spinal pain [Unknown]
  - Fall [Unknown]
  - Gait inability [Unknown]

NARRATIVE: CASE EVENT DATE: 2013
